FAERS Safety Report 13546536 (Version 1)
Quarter: 2017Q2

REPORT INFORMATION
  Report Type: Spontaneous
  Country: US (occurrence: US)
  Receive Date: 20170515
  Receipt Date: 20170515
  Transmission Date: 20170830
  Serious: Yes (Other)
  Sender: FDA-Public Use
  Company Number: None

PATIENT
  Age: 73 Year
  Sex: Male

DRUGS (1)
  1. LIDOCAINE PATCH 5% [Suspect]
     Active Substance: LIDOCAINE
     Indication: PAIN
     Dosage: ?          QUANTITY:30 PATCH(ES);?
     Route: 062
     Dates: start: 20170507

REACTIONS (6)
  - Application site pruritus [None]
  - Incorrect dose administered by device [None]
  - Product physical issue [None]
  - Product substitution issue [None]
  - Product closure removal difficult [None]
  - Product adhesion issue [None]

NARRATIVE: CASE EVENT DATE: 20170507
